FAERS Safety Report 20896528 (Version 1)
Quarter: 2022Q2

REPORT INFORMATION
  Report Type: Spontaneous
  Country: None (occurrence: CA)
  Receive Date: 20220531
  Receipt Date: 20220531
  Transmission Date: 20220721
  Serious: Yes (Other)
  Sender: FDA-Public Use
  Company Number: CA-B.Braun Medical Inc.-2129350

PATIENT
  Age: 61 Year
  Sex: Female

DRUGS (28)
  1. ACETAMINOPHEN [Suspect]
     Active Substance: ACETAMINOPHEN
  2. COMBIVENT [Suspect]
     Active Substance: ALBUTEROL SULFATE\IPRATROPIUM BROMIDE
  3. CYANOCOBALAMIN [Suspect]
     Active Substance: CYANOCOBALAMIN
  4. PINAVERIUM BROMIDE [Suspect]
     Active Substance: PINAVERIUM BROMIDE
  5. DILTIAZEM HYDROCHLORIDE [Suspect]
     Active Substance: DILTIAZEM HYDROCHLORIDE
  6. DIMENHYDRINATE [Suspect]
     Active Substance: DIMENHYDRINATE
  7. FLOVENT [Suspect]
     Active Substance: FLUTICASONE PROPIONATE
  8. FLUOXETINE [Suspect]
     Active Substance: FLUOXETINE HYDROCHLORIDE
  9. FUROSEMIDE [Suspect]
     Active Substance: FUROSEMIDE
  10. NITROGLYCERIN [Suspect]
     Active Substance: NITROGLYCERIN
  11. INSULIN ASPART [Suspect]
     Active Substance: INSULIN ASPART
  12. IPRATROPIUM BROMIDE [Suspect]
     Active Substance: IPRATROPIUM BROMIDE
  13. LACTULOSE [Suspect]
     Active Substance: LACTULOSE
  14. LOPERAMIDE [Suspect]
     Active Substance: LOPERAMIDE
  15. MEPOLIZUMAB [Suspect]
     Active Substance: MEPOLIZUMAB
  16. METFORMIN HYDROCHLORIDE [Suspect]
     Active Substance: METFORMIN HYDROCHLORIDE
  17. MONTELUKAST SODIUM [Suspect]
     Active Substance: MONTELUKAST SODIUM
  18. NASONEX [Suspect]
     Active Substance: MOMETASONE FUROATE
  19. NITROFURANTOIN [Suspect]
     Active Substance: NITROFURANTOIN
  20. NUCALA [Suspect]
     Active Substance: MEPOLIZUMAB
  21. PREDNISONE [Suspect]
     Active Substance: PREDNISONE
  22. QUINAPRIL HYDROCHLORIDE [Suspect]
     Active Substance: QUINAPRIL HYDROCHLORIDE
  23. ALBUTEROL [Suspect]
     Active Substance: ALBUTEROL
  24. GLYCOPYRROLATE [Suspect]
     Active Substance: GLYCOPYRROLATE
  25. SEMAGLUTIDE [Suspect]
     Active Substance: SEMAGLUTIDE
  26. SILDENAFIL CITRATE [Suspect]
     Active Substance: SILDENAFIL CITRATE
  27. SPIRIVA [Suspect]
     Active Substance: TIOTROPIUM BROMIDE MONOHYDRATE
  28. TRESIBA [Suspect]
     Active Substance: INSULIN DEGLUDEC

REACTIONS (31)
  - Angina pectoris [None]
  - Appetite disorder [None]
  - Asthma [None]
  - Chest discomfort [None]
  - Chest pain [None]
  - Cough [None]
  - Depressed mood [None]
  - Depressive symptom [None]
  - Dyspnoea [None]
  - Dyspnoea exertional [None]
  - Fall [None]
  - Heart sounds [None]
  - Influenza [None]
  - Injury [None]
  - Insomnia [None]
  - Loss of personal independence in daily activities [None]
  - Lower respiratory tract infection [None]
  - Malaise [None]
  - Nasal congestion [None]
  - Nasopharyngitis [None]
  - Productive cough [None]
  - Prolonged expiration [None]
  - Pyrexia [None]
  - Rales [None]
  - Respiration abnormal [None]
  - Rhinorrhoea [None]
  - Sleep disorder due to a general medical condition [None]
  - Stress [None]
  - Upper respiratory tract infection [None]
  - Weight decreased [None]
  - Wheezing [None]
